FAERS Safety Report 23522991 (Version 1)
Quarter: 2024Q1

REPORT INFORMATION
  Report Type: Spontaneous
  Country: US (occurrence: None)
  Receive Date: 20240213
  Receipt Date: 20240213
  Transmission Date: 20240410
  Serious: Yes (Other)
  Sender: FDA-Public Use
  Company Number: None

PATIENT
  Sex: 0

DRUGS (1)
  1. AZITHROMYCIN [Suspect]
     Active Substance: AZITHROMYCIN
     Indication: Bacterial infection
     Route: 048
     Dates: start: 20230509, end: 20230515

REACTIONS (2)
  - Abdominal pain lower [None]
  - Insomnia [None]

NARRATIVE: CASE EVENT DATE: 20230509
